FAERS Safety Report 5319843-5 (Version None)
Quarter: 2007Q2

REPORT INFORMATION
  Report Type: 
  Country: None (occurrence: None)
  Receive Date: 20070509
  Receipt Date: 20070503
  Transmission Date: 20071010
  Serious: Yes (Death, Hospitalization)
  Sender: FDA-Public Use
  Company Number: PHHO2007US03476

PATIENT
  Age: 55 Year
  Sex: Male
  Weight: 79 kg

DRUGS (15)
  1. CERTICAN [Suspect]
     Indication: RENAL TRANSPLANT
     Dosage: 1.5 MG DAILY
     Route: 048
     Dates: start: 20070206, end: 20070222
  2. NEORAL [Suspect]
     Indication: RENAL TRANSPLANT
     Dosage: 150 MG DAILY
     Route: 048
     Dates: start: 20070206
  3. NEORAL [Suspect]
     Dosage: 50 MG, BID
     Route: 048
  4. PREDNISONE TAB [Concomitant]
     Indication: RENAL TRANSPLANT
     Dosage: 40 MG DAILY
     Route: 048
  5. PREDNISONE TAB [Concomitant]
     Dosage: 35 MG DAILY
     Route: 048
  6. VALCYTE [Concomitant]
  7. ZANTAC [Concomitant]
  8. BACTRIM DS [Concomitant]
  9. NORVASC [Concomitant]
  10. DARVOCET-N 100 [Concomitant]
  11. MYCELEX [Concomitant]
  12. LIPITOR [Concomitant]
  13. ASPIRIN [Concomitant]
  14. LOPRESSOR [Concomitant]
  15. FLOMAX [Concomitant]

REACTIONS (19)
  - ABDOMINAL DISTENSION [None]
  - ABDOMINAL PAIN [None]
  - ANOREXIA [None]
  - BLOOD CREATININE INCREASED [None]
  - BLOOD PRESSURE DECREASED [None]
  - COMPARTMENT SYNDROME [None]
  - DEHYDRATION [None]
  - DISEASE PROGRESSION [None]
  - EXPLORATIVE LAPAROTOMY [None]
  - HAEMOGLOBIN DECREASED [None]
  - HEART RATE INCREASED [None]
  - IMMUNOSUPPRESSANT DRUG LEVEL INCREASED [None]
  - INFREQUENT BOWEL MOVEMENTS [None]
  - MALAISE [None]
  - PLATELET COUNT DECREASED [None]
  - RETROPERITONEAL HAEMATOMA [None]
  - SEPSIS [None]
  - URINE OUTPUT DECREASED [None]
  - VOMITING [None]
